FAERS Safety Report 7663307-0 (Version None)
Quarter: 2011Q3

REPORT INFORMATION
  Report Type: 
  Country: None (occurrence: None)
  Receive Date: 20110805
  Receipt Date: 20100814
  Transmission Date: 20111222
  Serious: No
  Sender: FDA-Public Use
  Company Number: US-ABBOTT-10P-163-0663988-00

PATIENT
  Sex: Female

DRUGS (6)
  1. ALDACTIZIDE [Concomitant]
     Indication: PRODUCT USED FOR UNKNOWN INDICATION
  2. NIASPAN [Suspect]
     Indication: PRODUCT USED FOR UNKNOWN INDICATION
     Dosage: AT BEDTIME
     Dates: start: 20100813
  3. NIASPAN [Suspect]
     Dates: start: 20100801
  4. CYMBALTA [Concomitant]
     Indication: PRODUCT USED FOR UNKNOWN INDICATION
  5. ARTHROTEC [Concomitant]
     Indication: PRODUCT USED FOR UNKNOWN INDICATION
  6. LOTREL [Concomitant]
     Indication: PRODUCT USED FOR UNKNOWN INDICATION

REACTIONS (6)
  - CHILLS [None]
  - LOSS OF CONSCIOUSNESS [None]
  - NAUSEA [None]
  - DIARRHOEA [None]
  - DIZZINESS [None]
  - PRURITUS GENERALISED [None]
